FAERS Safety Report 18915100 (Version 1)
Quarter: 2021Q1

REPORT INFORMATION
  Report Type: Spontaneous
  Country: FR (occurrence: FR)
  Receive Date: 20210219
  Receipt Date: 20210219
  Transmission Date: 20210420
  Serious: Yes (Death, Hospitalization)
  Sender: FDA-Public Use
  Company Number: FR-ROCHE-2772945

PATIENT
  Age: 82 Year
  Sex: Male
  Weight: 96 kg

DRUGS (16)
  1. SODIUM BICARBONATE. [Concomitant]
     Active Substance: SODIUM BICARBONATE
  2. CORTANCYL [Concomitant]
     Active Substance: PREDNISONE
  3. AMLODIPINE [Concomitant]
     Active Substance: AMLODIPINE BESYLATE
  4. NULOJIX [Concomitant]
     Active Substance: BELATACEPT
  5. NEORAL [Concomitant]
     Active Substance: CYCLOSPORINE
  6. NEBIVOLOL. [Concomitant]
     Active Substance: NEBIVOLOL
  7. KARDEGIC [Concomitant]
     Active Substance: ASPIRIN DL-LYSINE
  8. PANTOPRAZOLE [Concomitant]
     Active Substance: PANTOPRAZOLE
  9. CELLCEPT [Suspect]
     Active Substance: MYCOPHENOLATE MOFETIL\MYCOPHENOLATE MOFETIL HYDROCHLORIDE
     Indication: PROPHYLAXIS AGAINST TRANSPLANT REJECTION
     Route: 048
     Dates: start: 20200312, end: 20200317
  10. SOLU?MEDROL [Concomitant]
     Active Substance: METHYLPREDNISOLONE SODIUM SUCCINATE
  11. BACTRIM [Concomitant]
     Active Substance: SULFAMETHOXAZOLE\TRIMETHOPRIM
  12. FUROSEMIDE. [Concomitant]
     Active Substance: FUROSEMIDE
  13. CERTICAN [Concomitant]
     Active Substance: EVEROLIMUS
  14. EUPRESSYL [Concomitant]
     Active Substance: URAPIDIL
  15. NEORAL [Concomitant]
     Active Substance: CYCLOSPORINE
  16. VALGANCICLOVIR. [Concomitant]
     Active Substance: VALGANCICLOVIR

REACTIONS (3)
  - Pancytopenia [Recovered/Resolved]
  - Acute kidney injury [Not Recovered/Not Resolved]
  - Septic shock [Fatal]

NARRATIVE: CASE EVENT DATE: 20200316
